FAERS Safety Report 15593043 (Version 1)
Quarter: 2018Q4

REPORT INFORMATION
  Report Type: Report from Study
  Country: MX (occurrence: MX)
  Receive Date: 20181106
  Receipt Date: 20181106
  Transmission Date: 20190205
  Serious: Yes (Life-Threatening)
  Sender: FDA-Public Use
  Company Number: PHHY2018MX146925

PATIENT
  Age: 66 Year
  Sex: Female

DRUGS (3)
  1. ASPIRINE [Concomitant]
     Active Substance: ASPIRIN
     Indication: PROPHYLAXIS
     Dosage: 1 DF, QD
     Route: 065
     Dates: start: 20181019
  2. CO-DIOVAN [Suspect]
     Active Substance: HYDROCHLOROTHIAZIDE\VALSARTAN
     Dosage: 0.25 DF (HYDROCHLOROTHIAZIDE 12.5 MG, VALSARTAN 160 MG), BID
     Route: 048
  3. CO-DIOVAN [Suspect]
     Active Substance: HYDROCHLOROTHIAZIDE\VALSARTAN
     Indication: HYPERTENSION
     Dosage: 0.5 DF (HYDROCHLOROTHIAZIDE 12.5 MG, VALSARTAN 160 MG), QD (15 DAYS AGO)
     Route: 048
     Dates: start: 20181019

REACTIONS (9)
  - Gait disturbance [Unknown]
  - Burning sensation [Unknown]
  - Feeling abnormal [Unknown]
  - Wrong technique in product usage process [Unknown]
  - Malaise [Not Recovered/Not Resolved]
  - Fatigue [Unknown]
  - Tremor [Unknown]
  - Emotional distress [Unknown]
  - Product prescribing error [Unknown]

NARRATIVE: CASE EVENT DATE: 20181019
